FAERS Safety Report 15027456 (Version 1)
Quarter: 2018Q2

REPORT INFORMATION
  Report Type: Spontaneous
  Country: IL (occurrence: IL)
  Receive Date: 20180619
  Receipt Date: 20180619
  Transmission Date: 20180711
  Serious: Yes (Hospitalization, Other)
  Sender: FDA-Public Use
  Company Number: IL-ACCORD-068438

PATIENT
  Age: 74 Year
  Sex: Male

DRUGS (7)
  1. AMPHOTERICIN B. [Concomitant]
     Active Substance: AMPHOTERICIN B
     Indication: CRYPTOCOCCAL CUTANEOUS INFECTION
  2. FLUCONAZOLE. [Interacting]
     Active Substance: FLUCONAZOLE
     Indication: CRYPTOCOCCAL FUNGAEMIA
  3. PREDNISONE. [Concomitant]
     Active Substance: PREDNISONE
     Indication: FOCAL SEGMENTAL GLOMERULOSCLEROSIS
     Dosage: THIRD COURSE OF PREDNISONE TAPERING (35 MG/DAY). ? DOSE REDUCED TO 30 MG DAILY AND 2 MG/DAY
  4. WARFARIN [Concomitant]
     Active Substance: WARFARIN
     Indication: CONGESTIVE CARDIOMYOPATHY
  5. SIMVASTATIN. [Suspect]
     Active Substance: SIMVASTATIN
     Indication: PRODUCT USED FOR UNKNOWN INDICATION
  6. CICLOSPORIN [Interacting]
     Active Substance: CYCLOSPORINE
     Indication: FOCAL SEGMENTAL GLOMERULOSCLEROSIS
  7. FLUCONAZOLE. [Interacting]
     Active Substance: FLUCONAZOLE
     Indication: CRYPTOCOCCAL FUNGAEMIA
     Dosage: ALSO RECEIVED 400 MG ORALLY
     Route: 042

REACTIONS (4)
  - Rhabdomyolysis [Unknown]
  - Drug interaction [Unknown]
  - Acute kidney injury [Recovered/Resolved]
  - Hepatic enzyme increased [Unknown]
